FAERS Safety Report 8179635-9 (Version None)
Quarter: 2012Q1

REPORT INFORMATION
  Report Type: 
  Country: None (occurrence: None)
  Receive Date: 20120302
  Receipt Date: 20120224
  Transmission Date: 20120608
  Serious: Yes (Hospitalization)
  Sender: FDA-Public Use
  Company Number: 2012SP000635

PATIENT
  Age: 39 Year
  Sex: Male
  Weight: 139 kg

DRUGS (8)
  1. CLOZAPINE [Concomitant]
     Indication: SCHIZOPHRENIA, PARANOID TYPE
     Dates: start: 19920101, end: 20120101
  2. COGENTIN [Concomitant]
     Indication: PSYCHIATRIC SYMPTOM
  3. ALL OTHER THERAPEUTIC PRODUCTS [Concomitant]
     Indication: DIABETES MELLITUS
  4. HALDOL [Concomitant]
     Indication: PSYCHIATRIC SYMPTOM
  5. LATUDA [Suspect]
     Route: 048
     Dates: start: 20120101
  6. COUMADIN [Concomitant]
     Indication: THROMBOSIS
  7. LATUDA [Suspect]
     Indication: SCHIZOPHRENIA, PARANOID TYPE
     Route: 048
     Dates: start: 20120101, end: 20120101
  8. ZYPREXA [Concomitant]
     Indication: SCHIZOPHRENIA, PARANOID TYPE
     Dates: start: 20120101, end: 20120101

REACTIONS (6)
  - FEAR [None]
  - VIOLENCE-RELATED SYMPTOM [None]
  - PARANOIA [None]
  - NEGATIVE THOUGHTS [None]
  - HALLUCINATION, AUDITORY [None]
  - WEIGHT DECREASED [None]
